FAERS Safety Report 5140604-4 (Version None)
Quarter: 2006Q4

REPORT INFORMATION
  Report Type: 
  Country: None (occurrence: None)
  Receive Date: 20061031
  Receipt Date: 20061020
  Transmission Date: 20070319
  Serious: Yes (Death)
  Sender: FDA-Public Use
  Company Number: JP-BRISTOL-MYERS SQUIBB COMPANY-13558341

PATIENT
  Age: 67 Year
  Sex: Female

DRUGS (7)
  1. ABILIFY [Suspect]
     Indication: SCHIZOPHRENIA
     Dosage: 25-DEC-06 TO 1-SEP-06 DOSE WAS 6MG, DRUG STOPPED THEN RESTARTED FROM 2-SEP-06 TO 13-SEP-06 (12MG)
     Route: 048
     Dates: start: 20060811, end: 20060913
  2. ATORVASTATIN CALCIUM [Suspect]
     Indication: HYPERLIPIDAEMIA
     Route: 048
     Dates: start: 20011027, end: 20060913
  3. TRIAZOLAM [Suspect]
     Indication: INSOMNIA
     Route: 048
     Dates: start: 20041127, end: 20060912
  4. TRIFLUOPERAZINE HCL [Suspect]
     Indication: SCHIZOPHRENIA
     Route: 048
     Dates: start: 20041225, end: 20060913
  5. CARPIPRAMINE HCL [Suspect]
     Indication: SCHIZOPHRENIA
     Dosage: 25-DEC-06 TO 1-SEP-06 DOSE WAS 150MG, DRUG STOPPED THEN RESTARTED FROM 2-SEP-06 TO 13-SEP-06 (75MG)
     Route: 048
     Dates: start: 20041225, end: 20060913
  6. TRIHEXYPHENIDYL HCL [Suspect]
     Indication: PARKINSONISM
     Dosage: 25-DEC-06 TO 1-SEP-06 DOSE WAS 12MG, DRUG STOPPED THEN RESTARTED FROM 2-SEP-06 TO 13-SEP-06 (6MG)
     Route: 048
     Dates: start: 20041225, end: 20060913
  7. BROMAZEPAM [Concomitant]
     Indication: SCHIZOPHRENIA
     Route: 048
     Dates: start: 20041225, end: 20060913

REACTIONS (1)
  - CARDIAC FAILURE CONGESTIVE [None]
